FAERS Safety Report 10958348 (Version 2)
Quarter: 2015Q2

REPORT INFORMATION
  Report Type: Spontaneous
  Country: DE (occurrence: DE)
  Receive Date: 20150326
  Receipt Date: 20150407
  Transmission Date: 20150821
  Serious: Yes (Hospitalization)
  Sender: FDA-Public Use
  Company Number: PHHY2015DE022822

PATIENT
  Sex: Male

DRUGS (5)
  1. RITALIN [Suspect]
     Active Substance: METHYLPHENIDATE HYDROCHLORIDE
     Dosage: 10 MG, QD
     Route: 065
  2. RITALIN [Suspect]
     Active Substance: METHYLPHENIDATE HYDROCHLORIDE
     Dosage: 20 MG, BID
     Route: 065
  3. RITALIN [Suspect]
     Active Substance: METHYLPHENIDATE HYDROCHLORIDE
     Dosage: 10 MG, UNK
     Route: 065
  4. RITALIN [Suspect]
     Active Substance: METHYLPHENIDATE HYDROCHLORIDE
     Dosage: 20 MG, QD
     Route: 065
  5. RITALIN [Suspect]
     Active Substance: METHYLPHENIDATE HYDROCHLORIDE
     Indication: ATTENTION DEFICIT/HYPERACTIVITY DISORDER
     Dosage: 2 CAPSULES OF 30 MG
     Route: 065
     Dates: start: 2014

REACTIONS (9)
  - Drug tolerance [Unknown]
  - Depression [Unknown]
  - Rebound effect [Unknown]
  - Blood pressure increased [Unknown]
  - Hyperhidrosis [Unknown]
  - Skin irritation [Unknown]
  - Tachycardia [Unknown]
  - Restlessness [Unknown]
  - Overdose [Unknown]
